FAERS Safety Report 6620418-6 (Version None)
Quarter: 2010Q1

REPORT INFORMATION
  Report Type: 
  Country: None (occurrence: None)
  Receive Date: 20100308
  Receipt Date: 20100308
  Transmission Date: 20100710
  Serious: Yes (Death)
  Sender: FDA-Public Use
  Company Number: None

PATIENT

DRUGS (1)
  1. PACERONE [Suspect]
     Indication: VENTRICULAR TACHYCARDIA

REACTIONS (18)
  - ABASIA [None]
  - ASTHENIA [None]
  - BRAIN INJURY [None]
  - CARDIAC FAILURE CONGESTIVE [None]
  - DECREASED APPETITE [None]
  - DECUBITUS ULCER [None]
  - DEHYDRATION [None]
  - DELIRIUM [None]
  - DYSPNOEA [None]
  - FAECAL INCONTINENCE [None]
  - IMMOBILE [None]
  - INFECTION [None]
  - LIVER INJURY [None]
  - PULMONARY FIBROSIS [None]
  - PULMONARY TOXICITY [None]
  - RENAL FAILURE [None]
  - SPEECH DISORDER [None]
  - THROMBOSIS [None]
